FAERS Safety Report 4359999-4 (Version None)
Quarter: 2004Q2

REPORT INFORMATION
  Report Type: 
  Country: None (occurrence: None)
  Receive Date: 20040513
  Receipt Date: 20040506
  Transmission Date: 20050107
  Serious: Yes (Death)
  Sender: FDA-Public Use
  Company Number: GB-JNJFOC-20040402408

PATIENT
  Age: 53 Year
  Sex: Male

DRUGS (10)
  1. REMICADE (INFLIXIMAB, RECOMBINANT) LYOPHILIZED POWDER [Suspect]
     Indication: PSORIATIC ARTHROPATHY
     Dosage: 200 MG, INTRAVENOUS
     Route: 042
     Dates: start: 20021219
  2. METHOTREXATE [Concomitant]
  3. PREDNISOLONE [Concomitant]
  4. LANSOPRAZOLE [Concomitant]
  5. DICLOFENC (DICLOFENAC) [Concomitant]
  6. DIHYDROCODEINE    (DIHYDROCODEINE) [Concomitant]
  7. FERROUS SULPHATE (FERROUS SULPHATE) [Concomitant]
  8. CALCEOS (LEKOVIT CA) [Concomitant]
  9. ELOCON [Concomitant]
  10. FOLIC ACID [Concomitant]

REACTIONS (3)
  - MULTI-ORGAN FAILURE [None]
  - SEPSIS [None]
  - TONGUE NEOPLASM MALIGNANT STAGE UNSPECIFIED [None]
